FAERS Safety Report 16978701 (Version 3)
Quarter: 2024Q3

REPORT INFORMATION
  Report Type: Spontaneous
  Country: DE (occurrence: DE)
  Receive Date: 20191031
  Receipt Date: 20240904
  Transmission Date: 20241016
  Serious: Yes (Death, Hospitalization, Other)
  Sender: PFIZER
  Company Number: DE-DCGMA-19182910

PATIENT
  Age: 81 Year
  Sex: Male
  Weight: 65 kg

DRUGS (16)
  1. METHOTREXATE SODIUM [Interacting]
     Active Substance: METHOTREXATE SODIUM
     Indication: Rheumatoid arthritis
     Dosage: 10 MILLIGRAM DAILY; 1-0-0-0
     Route: 048
     Dates: start: 20190831, end: 20190906
  2. METHOTREXATE SODIUM [Interacting]
     Active Substance: METHOTREXATE SODIUM
     Dosage: LONG-TERM THERAPY SINCE 2007, 1X PER WEEK UNTIL 31-AUG-2019
     Route: 048
     Dates: start: 2007, end: 20190831
  3. METAMIZOLE [Interacting]
     Active Substance: METAMIZOLE
     Indication: Pain
     Dosage: 160 GTT DAILY; DAILY DOSE: 160 GTT DROP(S) EVERY DAYS 4 SEPARATED DOSES, METAMIZOL DROPS. (1-1-1-1)
     Route: 048
     Dates: start: 20190831, end: 20190906
  4. METAMIZOLE [Interacting]
     Active Substance: METAMIZOLE
     Indication: Accident
  5. METHOTREXATE SODIUM [Suspect]
     Active Substance: METHOTREXATE SODIUM
     Indication: Rheumatoid arthritis
     Dosage: 15 MG, QW
     Route: 048
     Dates: start: 200908, end: 20190831
  6. PREDNISOLONE [Concomitant]
     Active Substance: PREDNISOLONE
     Dosage: 5 MILLIGRAM DAILY; DAILY DOSE: 5 MG MILLGRAM(S) EVERY DAYS, (1-0-0-0)
     Dates: start: 20190831
  7. ZOFRAN [Concomitant]
     Active Substance: ONDANSETRON HYDROCHLORIDE
  8. DUTASTERIDE\TAMSULOSIN [Concomitant]
     Active Substance: DUTASTERIDE\TAMSULOSIN
     Dosage: DAILY DOSE: 1 DF DOSAGE FORM EVERY DAYS, 0.5/0.4 MG
  9. PIRITRAMIDE [Concomitant]
     Active Substance: PIRITRAMIDE
  10. ENOXAPARIN SODIUM [Concomitant]
     Active Substance: ENOXAPARIN SODIUM
     Dosage: DAILY DOSE: 40 MG MILLGRAM(S) EVERY DAYS
  11. FURADANTIN [Concomitant]
     Active Substance: NITROFURANTOIN
     Indication: Urinary tract infection
     Dosage: DAILY DOSE: 100 MG MILLGRAM(S) EVERY DAYS
  12. DIMENHYDRINATE [Concomitant]
     Active Substance: DIMENHYDRINATE
  13. MOVICOL [Concomitant]
     Active Substance: POLYETHYLENE GLYCOL 3350\POTASSIUM CHLORIDE\SODIUM BICARBONATE\SODIUM CHLORIDE
  14. OXYCODONE [Concomitant]
     Active Substance: OXYCODONE
  15. ERGOCALCIFEROL [Concomitant]
     Active Substance: ERGOCALCIFEROL
     Indication: Product used for unknown indication
     Dosage: UNK
  16. FOLIC ACID [Concomitant]
     Active Substance: FOLIC ACID
     Indication: Product used for unknown indication
     Dosage: UNK, QW (24H AFTER METHOTREXATE)
     Route: 048

REACTIONS (39)
  - Urosepsis [Fatal]
  - Polyuria [Fatal]
  - Thrombocytopenia [Fatal]
  - Wound infection [Fatal]
  - Road traffic accident [Fatal]
  - Femur fracture [Fatal]
  - Upper gastrointestinal haemorrhage [Fatal]
  - Melaena [Fatal]
  - Pneumonia aspiration [Fatal]
  - Dysarthria [Fatal]
  - Ulcerative gastritis [Fatal]
  - Dysphagia [Fatal]
  - Febrile neutropenia [Fatal]
  - Infarction [Fatal]
  - Product prescribing error [Fatal]
  - Accidental overdose [Fatal]
  - Agranulocytosis [Fatal]
  - Labelled drug-drug interaction medication error [Fatal]
  - Pancytopenia [Fatal]
  - Multiple organ dysfunction syndrome [Fatal]
  - Leukopenia [Unknown]
  - Cholecystitis [Unknown]
  - Bladder obstruction [Unknown]
  - Hepatic cyst [Unknown]
  - Renal cyst [Unknown]
  - Mucosal inflammation [Unknown]
  - Cholelithiasis [Unknown]
  - Increased bronchial secretion [Unknown]
  - Urinary tract disorder [Unknown]
  - Urinary tract infection [Unknown]
  - Plaque shift [Unknown]
  - Hypochromic anaemia [Unknown]
  - Respiratory rate increased [Unknown]
  - Diarrhoea [Unknown]
  - Hypotension [Unknown]
  - Bladder disorder [Unknown]
  - Tachycardia [Unknown]
  - Pleural effusion [Unknown]
  - C-reactive protein increased [Unknown]

NARRATIVE: CASE EVENT DATE: 20190831
